FAERS Safety Report 10636240 (Version 2)
Quarter: 2014Q4

REPORT INFORMATION
  Report Type: Spontaneous
  Country: NZ (occurrence: NZ)
  Receive Date: 20141206
  Receipt Date: 20141206
  Transmission Date: 20150529
  Serious: Yes (Hospitalization, Other)
  Sender: FDA-Public Use
  Company Number: NZ-ABBVIE-14K-118-1306161-00

PATIENT
  Age: 29 Year
  Sex: Female

DRUGS (1)
  1. HUMIRA [Suspect]
     Active Substance: ADALIMUMAB
     Indication: CROHN^S DISEASE
     Route: 065
     Dates: start: 20140815

REACTIONS (4)
  - Haematochezia [Unknown]
  - Thrombosis [Unknown]
  - Crohn^s disease [Unknown]
  - Venous thrombosis [Unknown]

NARRATIVE: CASE EVENT DATE: 2014
